FAERS Safety Report 4979672-9 (Version None)
Quarter: 2006Q2

REPORT INFORMATION
  Report Type: 
  Country: None (occurrence: None)
  Receive Date: 20060421
  Receipt Date: 20060411
  Transmission Date: 20061013
  Serious: Yes (Hospitalization)
  Sender: FDA-Public Use
  Company Number: DE-AMGEN-UK174952

PATIENT
  Sex: Male

DRUGS (2)
  1. PALIFERMIN [Suspect]
     Indication: MUCOSAL INFLAMMATION
     Route: 040
     Dates: start: 20060217, end: 20060310
  2. CISPLATIN [Suspect]
     Route: 065

REACTIONS (2)
  - DYSPHAGIA [None]
  - STOMATITIS [None]
